FAERS Safety Report 6435764-9 (Version None)
Quarter: 2009Q4

REPORT INFORMATION
  Report Type: 
  Country: None (occurrence: None)
  Receive Date: 20091110
  Receipt Date: 20080716
  Transmission Date: 20100525
  Serious: No
  Sender: FDA-Public Use
  Company Number: AECAN200800156

PATIENT
  Age: 69 Year
  Sex: Female

DRUGS (1)
  1. GAMUNEX [Suspect]
     Indication: SEPTIC SHOCK
     Dosage: 10 GM;1X;IV
     Route: 042
     Dates: start: 20080517, end: 20080517

REACTIONS (1)
  - PYREXIA [None]
